FAERS Safety Report 6168929-4 (Version None)
Quarter: 2009Q2

REPORT INFORMATION
  Report Type: 
  Country: None (occurrence: None)
  Receive Date: 20090424
  Receipt Date: 20090424
  Transmission Date: 20091009
  Serious: Yes (Hospitalization)
  Sender: FDA-Public Use
  Company Number: None

PATIENT
  Age: 81 Year
  Sex: Female

DRUGS (1)
  1. DEPAKOTE [Suspect]
     Indication: CONVULSION
     Dosage: DEPAKOTE 750MG BID PO
     Route: 048

REACTIONS (6)
  - ANAEMIA [None]
  - CONFUSIONAL STATE [None]
  - HYPOTENSION [None]
  - HYPOVOLAEMIA [None]
  - MACROCYTOSIS [None]
  - MYELODYSPLASTIC SYNDROME [None]
